FAERS Safety Report 7737072-2 (Version None)
Quarter: 2011Q3

REPORT INFORMATION
  Report Type: 
  Country: None (occurrence: None)
  Receive Date: 20110908
  Receipt Date: 20110826
  Transmission Date: 20111222
  Serious: Yes (Hospitalization)
  Sender: FDA-Public Use
  Company Number: US-ELI_LILLY_AND_COMPANY-US201106005220

PATIENT
  Sex: Female
  Weight: 43.084 kg

DRUGS (6)
  1. FORTEO [Suspect]
     Dosage: 20 UG, QD
  2. CELEBREX [Concomitant]
  3. FORTEO [Suspect]
     Indication: OSTEOPOROSIS
     Dosage: 20 UG, QD
     Dates: start: 20110301
  4. ESTRATEST [Concomitant]
     Indication: HORMONE REPLACEMENT THERAPY
  5. SPIRIVA [Concomitant]
  6. SYMBICORT [Concomitant]

REACTIONS (6)
  - ARTHRALGIA [None]
  - CHEST PAIN [None]
  - BONE PAIN [None]
  - MUSCULAR WEAKNESS [None]
  - FEELING ABNORMAL [None]
  - DIAPHRAGMALGIA [None]
